FAERS Safety Report 6929679-7 (Version None)
Quarter: 2010Q3

REPORT INFORMATION
  Report Type: 
  Country: None (occurrence: None)
  Receive Date: 20100818
  Receipt Date: 20100805
  Transmission Date: 20110219
  Serious: Yes (Hospitalization)
  Sender: FDA-Public Use
  Company Number: DE-BAYER-201035262GPV

PATIENT
  Age: 72 Year
  Sex: Male
  Weight: 66 kg

DRUGS (6)
  1. SORAFENIB OR PLACEBO [Suspect]
     Indication: ACUTE MYELOID LEUKAEMIA
     Dosage: TOTAL DAILY DOSE: 800 MG  UNIT DOSE: 200 MG
     Route: 048
     Dates: start: 20080605, end: 20080824
  2. CYTARABINE [Suspect]
     Indication: ACUTE MYELOID LEUKAEMIA
     Dosage: TOTAL DAILY DOSE: 3560 MG
     Route: 041
     Dates: start: 20080722, end: 20080722
  3. CYTARABINE [Suspect]
     Dosage: TOTAL DAILY DOSE: 3560 MG
     Route: 041
     Dates: start: 20100724, end: 20100724
  4. CYTARABINE [Suspect]
     Dosage: TOTAL DAILY DOSE: 3560 MG
     Route: 041
     Dates: start: 20080726, end: 20080726
  5. DAUNORUBICIN HCL [Suspect]
     Indication: ACUTE MYELOID LEUKAEMIA
  6. VFEND [Concomitant]
     Indication: PNEUMONIA FUNGAL
     Dosage: TOTAL DAILY DOSE: 400 MG
     Route: 048
     Dates: start: 20080822, end: 20080827

REACTIONS (1)
  - BONE MARROW FAILURE [None]
